FAERS Safety Report 8992971 (Version 1)
Quarter: 2013Q1

REPORT INFORMATION
  Report Type: Spontaneous
  Country: ES (occurrence: ES)
  Receive Date: 20130102
  Receipt Date: 20130102
  Transmission Date: 20140127
  Serious: Yes (Other)
  Sender: FDA-Public Use
  Company Number: ES-JNJFOC-20121212505

PATIENT
  Age: 32 Year
  Sex: Male

DRUGS (6)
  1. PREZISTA [Suspect]
     Indication: HIV INFECTION
     Route: 048
     Dates: start: 20121017, end: 20121025
  2. SEPTRIN FORTE [Suspect]
     Indication: ANTIFUNGAL PROPHYLAXIS
     Route: 048
     Dates: start: 20121017, end: 20121025
  3. NORVIR [Suspect]
     Indication: HIV INFECTION
     Route: 048
     Dates: start: 20121017, end: 20121025
  4. POLARAMINE REPETABS [Concomitant]
     Indication: PRODUCT USED FOR UNKNOWN INDICATION
     Route: 048
     Dates: start: 20121017
  5. TRUVADA [Concomitant]
     Indication: HIV INFECTION
     Route: 048
     Dates: start: 20121017
  6. ORFIDAL [Concomitant]
     Indication: ANXIETY
     Route: 048
     Dates: start: 20121017

REACTIONS (4)
  - Anaemia [Unknown]
  - Hepatitis [Unknown]
  - Neutropenia [Recovered/Resolved]
  - Rash [Recovered/Resolved]
